FAERS Safety Report 19056132 (Version 1)
Quarter: 2021Q1

REPORT INFORMATION
  Report Type: Spontaneous
  Country: US (occurrence: US)
  Receive Date: 20210324
  Receipt Date: 20210324
  Transmission Date: 20210420
  Serious: Yes (Hospitalization)
  Sender: FDA-Public Use
  Company Number: None

PATIENT
  Sex: Female

DRUGS (11)
  1. GLATIRAMER 40MG/ML SYR [Suspect]
     Active Substance: GLATIRAMER
     Indication: MULTIPLE SCLEROSIS
     Dosage: ?          OTHER DOSE:1 SYR;OTHER ROUTE:SQ?TUE?THU?SAT?
     Dates: start: 20190520
  2. SINGULAIR [Concomitant]
     Active Substance: MONTELUKAST SODIUM
  3. OXCARBAZEPIN [Concomitant]
     Active Substance: OXCARBAZEPINE
  4. PLAQUENIL [Concomitant]
     Active Substance: HYDROXYCHLOROQUINE SULFATE
  5. ROPINIROLE. [Concomitant]
     Active Substance: ROPINIROLE
  6. BACLOFEN. [Concomitant]
     Active Substance: BACLOFEN
  7. BYSTOLIC [Concomitant]
     Active Substance: NEBIVOLOL HYDROCHLORIDE
  8. PANTOPRAZOLE [Concomitant]
     Active Substance: PANTOPRAZOLE
  9. NUVIGIL [Concomitant]
     Active Substance: ARMODAFINIL
  10. CLARITIN CHW [Concomitant]
  11. LEXAPRO [Concomitant]
     Active Substance: ESCITALOPRAM OXALATE

REACTIONS (5)
  - Autoimmune arthritis [None]
  - Depressed mood [None]
  - Arthritis [None]
  - Fatigue [None]
  - Meniscus injury [None]
